FAERS Safety Report 18431715 (Version 1)
Quarter: 2020Q4

REPORT INFORMATION
  Report Type: Report from Study
  Country: BR (occurrence: BR)
  Receive Date: 20201027
  Receipt Date: 20201027
  Transmission Date: 20210114
  Serious: Yes (Other)
  Sender: FDA-Public Use
  Company Number: BR-TEVA-2020-BR-1842728

PATIENT
  Age: 42 Year
  Sex: Female

DRUGS (1)
  1. COPAXONE [Suspect]
     Active Substance: GLATIRAMER ACETATE
     Indication: MULTIPLE SCLEROSIS
     Route: 065
     Dates: start: 2015

REACTIONS (9)
  - Dyspnoea [Recovered/Resolved]
  - Tremor [Recovering/Resolving]
  - Fatigue [Recovering/Resolving]
  - Back pain [Recovering/Resolving]
  - Laryngeal oedema [Recovered/Resolved]
  - Nausea [Recovering/Resolving]
  - Burning sensation [Recovering/Resolving]
  - Pain [Recovering/Resolving]
  - Paraesthesia [Recovering/Resolving]

NARRATIVE: CASE EVENT DATE: 2016
